FAERS Safety Report 20686353 (Version 1)
Quarter: 2022Q2

REPORT INFORMATION
  Report Type: Spontaneous
  Country: US (occurrence: US)
  Receive Date: 20220407
  Receipt Date: 20220407
  Transmission Date: 20220721
  Serious: No
  Sender: FDA-Public Use
  Company Number: US-JAZZ-2022-US-004563

PATIENT
  Sex: Male
  Weight: 150 kg

DRUGS (6)
  1. SUNOSI [Suspect]
     Active Substance: SOLRIAMFETOL
     Indication: Hypersomnia
     Dosage: 75 MILLIGRAM, QD
     Route: 048
  2. FAMOTIDINE [Concomitant]
     Active Substance: FAMOTIDINE
  3. FUROSEMIDE [Concomitant]
     Active Substance: FUROSEMIDE
  4. HYDRALAZINE [Concomitant]
     Active Substance: HYDRALAZINE HYDROCHLORIDE
  5. LUNESTA [Concomitant]
     Active Substance: ESZOPICLONE
  6. ZALEPLON [Concomitant]
     Active Substance: ZALEPLON

REACTIONS (2)
  - Product administration interrupted [Unknown]
  - Off label use [Unknown]
